FAERS Safety Report 18157097 (Version 2)
Quarter: 2020Q4

REPORT INFORMATION
  Report Type: Report from Study
  Country: CO (occurrence: CO)
  Receive Date: 20200817
  Receipt Date: 20201105
  Transmission Date: 20210113
  Serious: Yes (Other)
  Sender: FDA-Public Use
  Company Number: CO-ASTELLAS-2020US026647

PATIENT
  Age: 79 Year
  Sex: Male
  Weight: 50 kg

DRUGS (1)
  1. ENZALUTAMIDE [Suspect]
     Active Substance: ENZALUTAMIDE
     Indication: HORMONE-REFRACTORY PROSTATE CANCER
     Route: 048
     Dates: start: 20200729, end: 20201023

REACTIONS (6)
  - Decreased appetite [Unknown]
  - Gait disturbance [Unknown]
  - General physical health deterioration [Unknown]
  - Dysstasia [Unknown]
  - Prostatitis [Recovering/Resolving]
  - Urinary tract disorder [Recovering/Resolving]

NARRATIVE: CASE EVENT DATE: 20200729
